FAERS Safety Report 7392212-2 (Version None)
Quarter: 2011Q2

REPORT INFORMATION
  Report Type: 
  Country: None (occurrence: None)
  Receive Date: 20110404
  Receipt Date: 20110328
  Transmission Date: 20111010
  Serious: Yes (Other)
  Sender: FDA-Public Use
  Company Number: B0710537A

PATIENT
  Age: 82 Year
  Sex: Female

DRUGS (3)
  1. DIGOXIN [Suspect]
     Route: 065
  2. DIURETICS [Concomitant]
     Route: 065
  3. ANTICOAGULANTS [Concomitant]
     Route: 065

REACTIONS (5)
  - DEHYDRATION [None]
  - CONFUSIONAL STATE [None]
  - AGITATION [None]
  - POLYURIA [None]
  - TOXICITY TO VARIOUS AGENTS [None]
